FAERS Safety Report 8302977-0 (Version None)
Quarter: 2012Q2

REPORT INFORMATION
  Report Type: 
  Country: None (occurrence: None)
  Receive Date: 20120420
  Receipt Date: 20120410
  Transmission Date: 20120825
  Serious: Yes (Life-Threatening, Hospitalization)
  Sender: FDA-Public Use
  Company Number: DE-PFIZER INC-2012094897

PATIENT
  Age: 69 Year
  Sex: Male

DRUGS (9)
  1. RAMIPRIL [Interacting]
     Indication: HYPERTENSION
     Dosage: 2.5 MG, 2X/DAY
     Route: 048
     Dates: start: 20070101, end: 20080714
  2. BISOPROLOL FUMARATE [Interacting]
     Indication: ANGINA PECTORIS
     Dosage: 2.5 MG, 1X/DAY
     Route: 048
     Dates: start: 20030101
  3. XIPAMIDE [Suspect]
     Indication: CARDIAC FAILURE
     Dosage: 40 MG, 1X/DAY
     Route: 048
     Dates: start: 20080624, end: 20080709
  4. ACETYLSALICYLIC ACID [Concomitant]
     Dosage: UNK
     Dates: start: 20050101
  5. RAMIPRIL [Interacting]
     Dosage: UNK
  6. SIMVASTATIN [Concomitant]
     Dosage: UNK
     Dates: start: 20060101
  7. CLOPIDOGREL BISULFATE [Concomitant]
     Dosage: UNK
     Dates: start: 20060101
  8. INSUMAN COMB 25 [Concomitant]
     Dosage: UNK
     Dates: start: 20050101
  9. TORSEMIDE [Suspect]
     Indication: CARDIAC FAILURE
     Dosage: 10 MG, UNK
     Route: 048
     Dates: start: 20060101, end: 20080714

REACTIONS (2)
  - DRUG INTERACTION [None]
  - CIRCULATORY COLLAPSE [None]
